FAERS Safety Report 6502200-3 (Version None)
Quarter: 2009Q4

REPORT INFORMATION
  Report Type: 
  Country: None (occurrence: None)
  Receive Date: 20091216
  Receipt Date: 20090917
  Transmission Date: 20100525
  Serious: No
  Sender: FDA-Public Use
  Company Number: US-ABBOTT-09P-163-0598327-00

PATIENT
  Age: 75 Year
  Sex: Male

DRUGS (4)
  1. TRILIPIX [Suspect]
     Indication: HYPERLIPIDAEMIA
     Route: 048
     Dates: start: 20090917
  2. TRILIPIX [Suspect]
     Route: 048
     Dates: end: 20090916
  3. RED RICE YEAST [Concomitant]
     Indication: DRUG USE FOR UNKNOWN INDICATION
  4. FISH OIL [Concomitant]
     Indication: HYPERLIPIDAEMIA

REACTIONS (1)
  - FATIGUE [None]
